FAERS Safety Report 19735299 (Version 2)
Quarter: 2021Q3

REPORT INFORMATION
  Report Type: Spontaneous
  Country: US (occurrence: US)
  Receive Date: 20210823
  Receipt Date: 20210930
  Transmission Date: 20211014
  Serious: No
  Sender: FDA-Public Use
  Company Number: US-ORGANON-O2108USA001454

PATIENT
  Age: 33 Year
  Sex: Female
  Weight: 59.86 kg

DRUGS (1)
  1. NEXPLANON [Suspect]
     Active Substance: ETONOGESTREL
     Dosage: 1 IMPLANT OF 68 MG IN LEFT UPPER ARM
     Route: 059
     Dates: start: 2018, end: 2021

REACTIONS (2)
  - No adverse event [Unknown]
  - Device kink [Recovered/Resolved]

NARRATIVE: CASE EVENT DATE: 20210817
